FAERS Safety Report 8392810-3 (Version None)
Quarter: 2012Q2

REPORT INFORMATION
  Report Type: 
  Country: None (occurrence: None)
  Receive Date: 20120529
  Receipt Date: 20120516
  Transmission Date: 20120825
  Serious: Yes (Hospitalization, Other)
  Sender: FDA-Public Use
  Company Number: CA-ELI_LILLY_AND_COMPANY-CA201202006925

PATIENT
  Age: 71 Year
  Sex: Female

DRUGS (14)
  1. FORTEO [Suspect]
     Indication: OSTEOPOROSIS
     Dosage: 20 UG, QD
     Route: 058
     Dates: start: 20101211
  2. VITALUX [Concomitant]
  3. COD LIVER OIL [Concomitant]
  4. VITAMIN D [Concomitant]
     Dosage: 2000 IU, QD
  5. PREDNISONE [Concomitant]
     Dosage: 5 MG, UNK
  6. MULTI-VITAMIN [Concomitant]
  7. OXYCODONE HCL [Concomitant]
  8. CALCIUM [Concomitant]
  9. ASPIRIN [Concomitant]
     Dosage: 81 MG, UNK
  10. FOLIC ACID [Concomitant]
     Dosage: 1 MG, WEEKLY (1/W)
     Route: 048
  11. METHOTREXATE [Concomitant]
     Dosage: 12.5 MG, WEEKLY (1/W)
     Route: 048
  12. PREDNISONE [Concomitant]
     Dosage: 15 MG, QD
     Route: 048
  13. CALCIUM WITH VITAMIN D [Concomitant]
  14. TYLENOL (CAPLET) [Concomitant]
     Dosage: UNK, PRN

REACTIONS (5)
  - OSTEONECROSIS [None]
  - LIMB ASYMMETRY [None]
  - FEMUR FRACTURE [None]
  - ACCIDENT [None]
  - ARTHRALGIA [None]
